FAERS Safety Report 10741337 (Version 2)
Quarter: 2016Q2

REPORT INFORMATION
  Report Type: Spontaneous
  Country: US (occurrence: US)
  Receive Date: 20150127
  Receipt Date: 20160622
  Transmission Date: 20160815
  Serious: Yes (Other)
  Sender: FDA-Public Use
  Company Number: US-BAYER-2015-008015

PATIENT
  Age: 36 Year
  Sex: Female

DRUGS (5)
  1. MIRENA [Suspect]
     Active Substance: LEVONORGESTREL
     Dosage: 20 MCG/24HR, CONT
     Route: 015
     Dates: start: 20050211, end: 201002
  2. MIRENA [Suspect]
     Active Substance: LEVONORGESTREL
     Dosage: UNK
     Route: 015
  3. MIRENA [Suspect]
     Active Substance: LEVONORGESTREL
     Dosage: 20 MCG/24HR, CONT
     Route: 015
     Dates: start: 201002, end: 201302
  4. VICODIN [Concomitant]
     Active Substance: ACETAMINOPHEN\HYDROCODONE BITARTRATE
  5. ACETAZOLAMIDE. [Concomitant]
     Active Substance: ACETAZOLAMIDE

REACTIONS (12)
  - Dizziness [None]
  - Weight increased [None]
  - Headache [None]
  - Injury [None]
  - Papilloedema [None]
  - Ear pain [None]
  - Benign intracranial hypertension [None]
  - CSF pressure increased [None]
  - Visual impairment [None]
  - Vision blurred [None]
  - Vitreous floaters [None]
  - Pain [None]

NARRATIVE: CASE EVENT DATE: 200909
